FAERS Safety Report 23102429 (Version 1)
Quarter: 2023Q4

REPORT INFORMATION
  Report Type: Spontaneous
  Country: HT (occurrence: HT)
  Receive Date: 20231025
  Receipt Date: 20231025
  Transmission Date: 20240109
  Serious: Yes (Death, Hospitalization)
  Sender: FDA-Public Use
  Company Number: None

PATIENT

DRUGS (14)
  1. FUROSEMIDE [Suspect]
     Active Substance: FUROSEMIDE
     Indication: Product used for unknown indication
     Dosage: 80 MG, QD
     Route: 042
     Dates: start: 20180628
  2. LEVOFLOXACIN [Suspect]
     Active Substance: LEVOFLOXACIN
     Indication: Tuberculosis
     Dosage: 1000 MG, UNK
     Route: 048
     Dates: start: 20171003, end: 20180713
  3. LEVOFLOXACIN [Suspect]
     Active Substance: LEVOFLOXACIN
     Dosage: 1000 MG
     Route: 048
     Dates: start: 20180730, end: 20190329
  4. CARVEDILOL [Suspect]
     Active Substance: CARVEDILOL
     Indication: Product used for unknown indication
     Dosage: 6.25 MG, QD (STOP DATE: 2018)
     Route: 048
     Dates: start: 20180628
  5. CARVEDILOL [Suspect]
     Active Substance: CARVEDILOL
     Dosage: UNK
     Route: 048
     Dates: start: 20180730
  6. ETHIONAMIDE [Suspect]
     Active Substance: ETHIONAMIDE
     Indication: Tuberculosis
     Dosage: 750 MG, UNK
     Route: 048
     Dates: start: 20171003, end: 20180713
  7. ETHIONAMIDE [Suspect]
     Active Substance: ETHIONAMIDE
     Dosage: UNK
     Route: 065
     Dates: start: 20180730, end: 20190329
  8. PYRAZINAMIDE [Suspect]
     Active Substance: PYRAZINAMIDE
     Indication: Tuberculosis
     Dosage: 1750 MG, UNK
     Route: 048
     Dates: start: 20171003, end: 20180713
  9. PYRAZINAMIDE [Suspect]
     Active Substance: PYRAZINAMIDE
     Dosage: UNK
     Route: 065
     Dates: start: 20180730, end: 20190329
  10. BUTYLSCOPOLAMINE [Suspect]
     Active Substance: BUTYLSCOPOLAMINE
     Indication: Product used for unknown indication
     Dosage: 10 MG, PRN
     Route: 030
     Dates: start: 201806
  11. SIRTURO [Suspect]
     Active Substance: BEDAQUILINE FUMARATE
     Indication: Tuberculosis
     Dosage: UNK
     Route: 048
     Dates: start: 20171030, end: 20180428
  12. CYCLOSERINE [Suspect]
     Active Substance: CYCLOSERINE
     Indication: Tuberculosis
     Dosage: 500 MG, UNK
     Route: 048
     Dates: start: 20171003, end: 20180713
  13. CYCLOSERINE [Suspect]
     Active Substance: CYCLOSERINE
     Dosage: 500 UNK
     Route: 048
     Dates: start: 20180730, end: 20190329
  14. INSULIN NOS [Concomitant]
     Active Substance: INSULIN NOS
     Indication: Product used for unknown indication
     Dosage: UNK
     Route: 065
     Dates: start: 20171003

REACTIONS (5)
  - Cardiac disorder [Fatal]
  - Myocardial ischaemia [Unknown]
  - Hepatomegaly [Unknown]
  - Pleural effusion [Unknown]
  - Hepatic enzyme increased [Recovering/Resolving]

NARRATIVE: CASE EVENT DATE: 20180628
